FAERS Safety Report 12207339 (Version 2)
Quarter: 2016Q2

REPORT INFORMATION
  Report Type: Report from Study
  Country: PL (occurrence: PL)
  Receive Date: 20160324
  Receipt Date: 20160527
  Transmission Date: 20160815
  Serious: Yes (Hospitalization)
  Sender: FDA-Public Use
  Company Number: PHHY2016PL026082

PATIENT
  Age: 3 Year
  Sex: Male
  Weight: 16 kg

DRUGS (4)
  1. EXJADE [Suspect]
     Active Substance: DEFERASIROX
     Dosage: 250 MG, QD
     Route: 048
     Dates: start: 20160309
  2. METHOTREXATE (METHOTREXATE SODIUM) [Concomitant]
     Active Substance: METHOTREXATE SODIUM
     Dosage: 10 MG, UNK
     Route: 048
  3. METHOTREXATE (METHOTREXATE SODIUM) [Concomitant]
     Active Substance: METHOTREXATE SODIUM
     Indication: ACUTE LYMPHOCYTIC LEUKAEMIA
     Dosage: 12.5 MG, UNK
     Route: 048
  4. EXJADE [Suspect]
     Active Substance: DEFERASIROX
     Indication: IRON OVERLOAD
     Dosage: 250 MG, QD
     Route: 048
     Dates: start: 20151207, end: 20160225

REACTIONS (8)
  - Large intestinal haemorrhage [Unknown]
  - Melaena [Recovered/Resolved]
  - Diarrhoea [Recovered/Resolved]
  - Abdominal pain upper [Unknown]
  - Haematochezia [Recovered/Resolved]
  - Abdominal tenderness [Recovered/Resolved]
  - Abdominal pain [Recovered/Resolved]
  - Abnormal faeces [Recovered/Resolved]

NARRATIVE: CASE EVENT DATE: 20160224
